FAERS Safety Report 9226784 (Version 1)
Quarter: 2013Q2

REPORT INFORMATION
  Report Type: Spontaneous
  Country: ES (occurrence: ES)
  Receive Date: 20130412
  Receipt Date: 20130412
  Transmission Date: 20140414
  Serious: Yes (Other)
  Sender: FDA-Public Use
  Company Number: ES-ABBOTT-13X-144-1072231-00

PATIENT
  Age: 17 Year
  Sex: Male

DRUGS (3)
  1. KLACID [Suspect]
     Indication: PHARYNGITIS
     Route: 065
     Dates: start: 20130308, end: 20130309
  2. IBUPROFEN [Suspect]
     Indication: OROPHARYNGEAL PAIN
     Route: 065
     Dates: start: 20130308, end: 20130309
  3. VENTOLIN [Concomitant]
     Indication: ASTHMA
     Dosage: SUSPENSION FOR INHALATION
     Route: 055

REACTIONS (8)
  - Throat irritation [Unknown]
  - Dyspepsia [Unknown]
  - Nausea [Unknown]
  - Abdominal pain upper [Unknown]
  - Diarrhoea [Unknown]
  - Gastritis [Unknown]
  - Abdominal discomfort [Unknown]
  - Pain in extremity [Unknown]
